FAERS Safety Report 6576041-5 (Version None)
Quarter: 2010Q1

REPORT INFORMATION
  Report Type: 
  Country: None (occurrence: None)
  Receive Date: 20100209
  Receipt Date: 20100128
  Transmission Date: 20100710
  Serious: Yes (Other)
  Sender: FDA-Public Use
  Company Number: PHEH2009US18076

PATIENT
  Sex: Female

DRUGS (4)
  1. EXJADE [Suspect]
     Indication: MYELODYSPLASTIC SYNDROME
     Dosage: 2000 MG, DAILY
     Route: 048
     Dates: start: 20091201
  2. FEXOFENADINE [Concomitant]
  3. BLOOD AND RELATED PRODUCTS [Concomitant]
  4. ASPIRIN [Concomitant]

REACTIONS (5)
  - ALOPECIA [None]
  - ANGINA PECTORIS [None]
  - BALANCE DISORDER [None]
  - EAR DISORDER [None]
  - VISUAL IMPAIRMENT [None]
